FAERS Safety Report 4539652-4 (Version None)
Quarter: 2004Q4

REPORT INFORMATION
  Report Type: 
  Country: None (occurrence: None)
  Receive Date: 20041228
  Receipt Date: 20040929
  Transmission Date: 20050328
  Serious: Yes (Hospitalization)
  Sender: FDA-Public Use
  Company Number: FR-NOVOPROD-239611

PATIENT
  Age: 74 Year
  Sex: Female
  Weight: 59 kg

DRUGS (10)
  1. NOVONORM [Suspect]
     Indication: DIABETES MELLITUS NON-INSULIN-DEPENDENT
     Dosage: 1 MG, TID
     Route: 048
     Dates: start: 20040823, end: 20040909
  2. AMOXICILLIN [Concomitant]
     Dates: start: 20040820, end: 20040831
  3. LASILIX [Concomitant]
     Dosage: 40 MG, BID
     Route: 048
     Dates: end: 20040910
  4. DUPHALAC                                /SCH/ [Concomitant]
     Dosage: 10 G, UNK
     Route: 048
     Dates: start: 20040827
  5. VANCOMYCIN [Concomitant]
     Route: 042
     Dates: start: 20040819, end: 20040820
  6. APROVEL [Concomitant]
     Route: 048
     Dates: end: 20040816
  7. ZYLORIC ^FAES^ [Concomitant]
     Route: 048
     Dates: end: 20040909
  8. RENAGEL [Concomitant]
     Route: 048
     Dates: end: 20040909
  9. CHLORAMINOPHENE ^TECHNI-PHARMA^ [Concomitant]
     Route: 048
  10. CALCITRIOL [Concomitant]

REACTIONS (2)
  - PRURITUS [None]
  - RASH [None]
